FAERS Safety Report 6939824-5 (Version None)
Quarter: 2010Q3

REPORT INFORMATION
  Report Type: 
  Country: None (occurrence: None)
  Receive Date: 20100825
  Receipt Date: 20100819
  Transmission Date: 20110219
  Serious: No
  Sender: FDA-Public Use
  Company Number: US-BIOGENIDEC-2010BI028648

PATIENT
  Age: 48 Year
  Sex: Female

DRUGS (4)
  1. AVONEX [Suspect]
     Indication: MULTIPLE SCLEROSIS
     Route: 030
     Dates: start: 20090101, end: 20090101
  2. AVONEX [Suspect]
     Route: 030
     Dates: start: 20100701
  3. LYRICA [Concomitant]
     Indication: MUSCULOSKELETAL PAIN
     Route: 048
  4. LYRICA [Concomitant]
     Indication: NECK PAIN
     Route: 048

REACTIONS (2)
  - GAIT DISTURBANCE [None]
  - TENDONITIS [None]
